FAERS Safety Report 8397720 (Version 2)
Quarter: 2013Q1

REPORT INFORMATION
  Report Type: Spontaneous
  Country: US (occurrence: US)
  Receive Date: 20120209
  Receipt Date: 20130204
  Transmission Date: 20140127
  Serious: Yes (Hospitalization, Other)
  Sender: FDA-Public Use
  Company Number: US-ROCHE-1037665

PATIENT
  Age: 44 Year
  Sex: Male
  Weight: 74.91 kg

DRUGS (2)
  1. ACCUTANE [Suspect]
     Indication: DERMATITIS
     Route: 065
     Dates: start: 19940316, end: 19940616
  2. ACCUTANE [Suspect]
     Indication: ACNE

REACTIONS (6)
  - Pyoderma gangrenosum [Unknown]
  - Colitis ulcerative [Unknown]
  - Small intestinal obstruction [Recovered/Resolved]
  - Inflammatory bowel disease [Unknown]
  - Blood alkaline phosphatase increased [Unknown]
  - Irritable bowel syndrome [Unknown]
